FAERS Safety Report 15508059 (Version 3)
Quarter: 2018Q4

REPORT INFORMATION
  Report Type: Spontaneous
  Country: US (occurrence: US)
  Receive Date: 20181016
  Receipt Date: 20181022
  Transmission Date: 20190205
  Serious: No
  Sender: FDA-Public Use
  Company Number: US-PFIZER INC-2018416196

PATIENT
  Age: 62 Year
  Sex: Male
  Weight: 62.14 kg

DRUGS (2)
  1. LYRICA [Suspect]
     Active Substance: PREGABALIN
     Dosage: 50 MG, 1X/DAY (AT NIGHT OR IN THE MORNING)
  2. LYRICA [Suspect]
     Active Substance: PREGABALIN
     Indication: SPINAL CORD COMPRESSION
     Dosage: 150 MG, DAILY (50 MG TABLET IN THE MORNING AND TWO 50 MG TABLETS AT NIGHT)
     Route: 048
     Dates: start: 2015

REACTIONS (7)
  - Chills [Unknown]
  - Withdrawal syndrome [Unknown]
  - Nausea [Unknown]
  - Hot flush [Unknown]
  - Intentional product use issue [Unknown]
  - Pain [Unknown]
  - Feeling abnormal [Unknown]

NARRATIVE: CASE EVENT DATE: 20181010
